FAERS Safety Report 12583967 (Version 1)
Quarter: 2016Q3

REPORT INFORMATION
  Report Type: Spontaneous
  Country: FR (occurrence: FR)
  Receive Date: 20160722
  Receipt Date: 20160722
  Transmission Date: 20161109
  Serious: Yes (Hospitalization)
  Sender: FDA-Public Use
  Company Number: PHHY2016FR100857

PATIENT
  Age: 45 Year
  Sex: Female

DRUGS (1)
  1. VOLTARENE [Suspect]
     Active Substance: DICLOFENAC SODIUM
     Indication: PAIN
     Dosage: UNK
     Route: 048
     Dates: start: 20160610, end: 20160617

REACTIONS (2)
  - Haemorrhage [Not Recovered/Not Resolved]
  - Vasoconstriction [Not Recovered/Not Resolved]

NARRATIVE: CASE EVENT DATE: 20160610
